FAERS Safety Report 4929138-7 (Version None)
Quarter: 2006Q1

REPORT INFORMATION
  Report Type: 
  Country: None (occurrence: None)
  Receive Date: 20060130
  Receipt Date: 20051004
  Transmission Date: 20060701
  Serious: Yes (Hospitalization)
  Sender: FDA-Public Use
  Company Number: RB-2112-2005

PATIENT
  Sex: Male

DRUGS (8)
  1. SUBOXONE [Suspect]
     Indication: DRUG DEPENDENCE
     Dosage: 4 MG BID SL
     Route: 060
     Dates: start: 20050930, end: 20051001
  2. COLACE [Concomitant]
  3. PROTONIX [Concomitant]
  4. NEURONTIN [Concomitant]
  5. RESTORIL [Concomitant]
  6. PROZAC [Concomitant]
  7. TRAZODONE HCL [Concomitant]
  8. SEROQUEL [Concomitant]

REACTIONS (1)
  - RESPIRATORY DEPRESSION [None]
